FAERS Safety Report 4492700-2 (Version None)
Quarter: 2004Q4

REPORT INFORMATION
  Report Type: 
  Country: None (occurrence: None)
  Receive Date: 20041102
  Receipt Date: 20041020
  Transmission Date: 20050328
  Serious: Yes (Hospitalization)
  Sender: FDA-Public Use
  Company Number: B0347327A

PATIENT
  Age: 49 Year
  Sex: Male
  Weight: 57.879 kg

DRUGS (4)
  1. EPIVIR [Suspect]
     Indication: HIV INFECTION
     Dosage: 300 MG/PER DAY/ORAL
     Route: 048
     Dates: start: 19990201
  2. NEVIRAPINE (NEVIRAPINE) [Suspect]
     Indication: HIV INFECTION
     Dosage: 200 MG/TWICE PER DAY/ORAL
     Route: 048
     Dates: start: 20030601
  3. KALETRA [Suspect]
     Indication: HIV INFECTION
     Dosage: 3 UNIT/TWICE PER DAY/ORAL
     Route: 048
     Dates: start: 20030601
  4. TENOFOVIR DISOPROXIL FUMA (TENOFOVIR DISOPROXIL FUMA) [Suspect]
     Indication: HIV INFECTION
     Dosage: 300 MG/PER DAY/ORAL
     Route: 048
     Dates: start: 20030601

REACTIONS (5)
  - ANGINA UNSTABLE [None]
  - CORONARY ARTERY OCCLUSION [None]
  - CORONARY ARTERY STENOSIS [None]
  - ELECTROCARDIOGRAM ST SEGMENT DEPRESSION [None]
  - HEART RATE DECREASED [None]
